FAERS Safety Report 6671554-X (Version None)
Quarter: 2010Q2

REPORT INFORMATION
  Report Type: 
  Country: None (occurrence: None)
  Receive Date: 20100407
  Receipt Date: 20100331
  Transmission Date: 20101027
  Serious: Yes (Death)
  Sender: FDA-Public Use
  Company Number: US-ELI_LILLY_AND_COMPANY-US201004000397

PATIENT
  Sex: Female

DRUGS (2)
  1. GEMCITABINE HCL [Suspect]
     Indication: NEOPLASM MALIGNANT
  2. ERLOTINIB [Concomitant]

REACTIONS (2)
  - DEATH [None]
  - THROMBOCYTOPENIA [None]
